FAERS Safety Report 24608562 (Version 1)
Quarter: 2024Q4

REPORT INFORMATION
  Report Type: Spontaneous
  Country: GB (occurrence: GB)
  Receive Date: 20241112
  Receipt Date: 20241112
  Transmission Date: 20250114
  Serious: Yes (Other)
  Sender: TEVA
  Company Number: XI-CAMURUS AB-XI-CAM-24-01313

PATIENT
  Age: 26 Year
  Sex: Female

DRUGS (2)
  1. BUPRENORPHINE [Suspect]
     Active Substance: BUPRENORPHINE
     Indication: Product used for unknown indication
     Dosage: UNK
     Route: 065
  2. PREGABALIN [Suspect]
     Active Substance: PREGABALIN
     Indication: Product used for unknown indication
     Dosage: UNK
     Route: 065
     Dates: end: 20230213

REACTIONS (3)
  - Hepatitis C [Not Recovered/Not Resolved]
  - Amenorrhoea [Recovered/Resolved]
  - Drug abuse [Recovered/Resolved]
